FAERS Safety Report 8092659-5 (Version None)
Quarter: 2012Q1

REPORT INFORMATION
  Report Type: 
  Country: None (occurrence: None)
  Receive Date: 20120131
  Receipt Date: 20120126
  Transmission Date: 20120608
  Serious: No
  Sender: FDA-Public Use
  Company Number: US-PFIZER INC-2011228766

PATIENT
  Sex: Female
  Weight: 80.726 kg

DRUGS (13)
  1. IBUPROFEN (ADVIL) [Suspect]
     Dosage: UNK
  2. LEVOTHYROXINE SODIUM [Concomitant]
     Indication: HYPOTHYROIDISM
     Dosage: 50 UG, UNK
  3. CALCIUM WITH VITAMIN D [Concomitant]
     Dosage: UNK
  4. MEFENAMIC ACID [Suspect]
     Indication: BACK PAIN
     Dosage: UNK
  5. HUMIRA [Suspect]
     Indication: PSORIATIC ARTHROPATHY
     Dosage: 40 MG/0.8ML, UNK
     Dates: start: 20010101, end: 20100101
  6. ENBREL [Suspect]
     Dosage: UNK
     Dates: start: 20100801, end: 20101001
  7. HUMIRA [Suspect]
     Dosage: 40 MG, 1 IN 10 DAY
     Dates: start: 20110401
  8. CLONAZEPAM [Concomitant]
     Indication: RESTLESS LEGS SYNDROME
     Dosage: 0.5 MG, UNK
  9. CITALOPRAM [Concomitant]
     Indication: FIBROMYALGIA
     Dosage: 10 MG, UNK
  10. MEFENAMIC ACID [Suspect]
     Indication: MUSCULOSKELETAL PAIN
  11. MEFENAMIC ACID [Suspect]
     Indication: NECK PAIN
  12. CLONAZEPAM [Concomitant]
     Indication: ANXIETY
  13. RISEDRONATE SODIUM [Concomitant]
     Indication: OSTEOPOROSIS
     Dosage: UNK

REACTIONS (18)
  - FLUSHING [None]
  - INJECTION SITE HAEMATOMA [None]
  - PAPULE [None]
  - NECK PAIN [None]
  - PYREXIA [None]
  - INJECTION SITE HAEMORRHAGE [None]
  - DECREASED APPETITE [None]
  - BACK PAIN [None]
  - MALAISE [None]
  - ABDOMINAL PAIN UPPER [None]
  - MUSCULOSKELETAL PAIN [None]
  - BLOOD URINE PRESENT [None]
  - ONYCHOMYCOSIS [None]
  - INJECTION SITE NODULE [None]
  - THERAPY REGIMEN CHANGED [None]
  - FUNGAL INFECTION [None]
  - FIBROMYALGIA [None]
  - BLOOD CHOLESTEROL INCREASED [None]
